FAERS Safety Report 7559144-8 (Version None)
Quarter: 2011Q2

REPORT INFORMATION
  Report Type: 
  Country: None (occurrence: None)
  Receive Date: 20110621
  Receipt Date: 20110620
  Transmission Date: 20111010
  Serious: Yes (Life-Threatening, Hospitalization, Other)
  Sender: FDA-Public Use
  Company Number: FR-PFIZER INC-2011035258

PATIENT
  Age: 5 Year
  Sex: Male
  Weight: 18.3 kg

DRUGS (6)
  1. FUMAFER [Concomitant]
     Indication: RENAL FAILURE CHRONIC
     Dosage: 1 DF, 1X/DAY
     Route: 048
     Dates: start: 20081118
  2. UN-ALFA [Concomitant]
     Indication: RENAL FAILURE CHRONIC
     Dosage: 4 GTT, 1X/DAY
     Route: 048
     Dates: start: 20091129
  3. SODIUM BICARBONATE [Concomitant]
     Indication: RENAL FAILURE CHRONIC
     Dosage: 500 MG, 2X/DAY
     Route: 048
     Dates: start: 20090519
  4. FERROSTRANE [Concomitant]
     Indication: RENAL FAILURE CHRONIC
     Dosage: UNK
  5. SOMATROPIN RDNA [Suspect]
     Indication: RENAL FAILURE CHRONIC
     Dosage: 0.9 MG, 1X/DAY, 6 DAYS OUT OF 7
     Route: 058
     Dates: start: 20100831, end: 20110218
  6. CALCIUM CARBONATE [Concomitant]
     Indication: RENAL FAILURE CHRONIC
     Dosage: 0.25 DF, 1X/DAY
     Route: 048
     Dates: start: 20100629

REACTIONS (5)
  - NEPHROTIC SYNDROME [None]
  - RENAL FAILURE ACUTE [None]
  - FACE OEDEMA [None]
  - GLOMERULONEPHRITIS MEMBRANOPROLIFERATIVE [None]
  - EYELID OEDEMA [None]
